FAERS Safety Report 6446492-8 (Version None)
Quarter: 2009Q4

REPORT INFORMATION
  Report Type: 
  Country: None (occurrence: None)
  Receive Date: 20091119
  Receipt Date: 20091114
  Transmission Date: 20100525
  Serious: Yes (Hospitalization, Other)
  Sender: FDA-Public Use
  Company Number: US-B.I. PHARMACEUTICALS,INC./RIDGEFIELD-2009-BP-09709BP

PATIENT
  Sex: Female

DRUGS (3)
  1. SPIRIVA [Suspect]
     Indication: CHRONIC OBSTRUCTIVE PULMONARY DISEASE
     Dosage: 18 MCG
     Route: 055
     Dates: start: 20090601, end: 20090815
  2. RECLAST [Concomitant]
     Indication: OSTEOPOROSIS
  3. ADVAIR DISKUS 100/50 [Concomitant]
     Indication: CHRONIC OBSTRUCTIVE PULMONARY DISEASE

REACTIONS (26)
  - APHONIA [None]
  - CATARACT [None]
  - CHEST PAIN [None]
  - COUGH [None]
  - DYSPHAGIA [None]
  - DYSPNOEA [None]
  - EATING DISORDER [None]
  - FATIGUE [None]
  - HEART RATE INCREASED [None]
  - HYPERSENSITIVITY [None]
  - INTRAOCULAR PRESSURE INCREASED [None]
  - JOINT SWELLING [None]
  - LARYNGEAL OEDEMA [None]
  - LIP SWELLING [None]
  - MYALGIA [None]
  - NIGHT BLINDNESS [None]
  - OEDEMA PERIPHERAL [None]
  - OPTIC NERVE INJURY [None]
  - ORAL CANDIDIASIS [None]
  - PHARYNGEAL OEDEMA [None]
  - RHABDOMYOLYSIS [None]
  - RHINORRHOEA [None]
  - SPEECH DISORDER [None]
  - SWELLING [None]
  - SWOLLEN TONGUE [None]
  - VISION BLURRED [None]
